FAERS Safety Report 13079245 (Version 1)
Quarter: 2017Q1

REPORT INFORMATION
  Report Type: Report from Study
  Country: GT (occurrence: GT)
  Receive Date: 20170103
  Receipt Date: 20170103
  Transmission Date: 20170428
  Serious: Yes (Other)
  Sender: FDA-Public Use
  Company Number: PHHY2016GT180861

PATIENT
  Age: 76 Year
  Sex: Male

DRUGS (2)
  1. EXFORGE HCT [Suspect]
     Active Substance: AMLODIPINE BESYLATE\HYDROCHLOROTHIAZIDE\VALSARTAN
     Dosage: 1 DF (5MG AMLODIPINE /12.5MG HYDROCHLOROTHIAZIDE/ 160MG VALSARTAN)
     Route: 065
  2. EXFORGE HCT [Suspect]
     Active Substance: AMLODIPINE BESYLATE\HYDROCHLOROTHIAZIDE\VALSARTAN
     Indication: PRODUCT USED FOR UNKNOWN INDICATION
     Dosage: 1 DF (10MG AMLODIPINE/25MG HYDROCHLOROTHIAZIDE/ 320MG VALSARTAN)
     Route: 065

REACTIONS (4)
  - Blood pressure abnormal [Unknown]
  - Gastric ulcer [Unknown]
  - Blood glucose abnormal [Unknown]
  - Malaise [Unknown]
